FAERS Safety Report 10483507 (Version 2)
Quarter: 2014Q4

REPORT INFORMATION
  Report Type: Spontaneous
  Country: DE (occurrence: None)
  Receive Date: 20140926
  Receipt Date: 20141010
  Transmission Date: 20150528
  Serious: Yes (Hospitalization, Other)
  Sender: FDA-Public Use
  Company Number: 2014090051

PATIENT
  Age: 44 Year
  Sex: Female
  Weight: 65 kg

DRUGS (3)
  1. PERAZINE DIMALONATE [Suspect]
     Active Substance: PERAZINE DIMALONATE
     Dosage: 4 DOSAGE FORMS (4 DOSAGE FORMS, 1 IN 1 TOTAL), ORAL
     Route: 048
  2. ZOLPIDEM TARTRATE EXTENDED RELEASE [Suspect]
     Active Substance: ZOLPIDEM TARTRATE
     Dosage: 10 DOSAGE FORMS (10 DOSAGE FORMS, 1 IN 1 TOTAL), ORAL
     Route: 048
  3. LITHIUM [Suspect]
     Active Substance: LITHIUM CARBONATE
     Dosage: 29 TABLETS (0.022 G PER PILL) (29 DOSAGE FORMS, 1 IN 1 TOTAL), ORAL
     Route: 048

REACTIONS (7)
  - Suicide attempt [None]
  - Intentional overdose [None]
  - Somnolence [None]
  - Dialysis [None]
  - Polyuria [None]
  - Toxicity to various agents [None]
  - Agitation [None]
